FAERS Safety Report 18253423 (Version 4)
Quarter: 2021Q4

REPORT INFORMATION
  Report Type: Report from Study
  Country: DE (occurrence: DE)
  Receive Date: 20200910
  Receipt Date: 20211108
  Transmission Date: 20220303
  Serious: Yes (Hospitalization, Other)
  Sender: FDA-Public Use
  Company Number: DE-002147023-NVSC2020DE233874

PATIENT
  Sex: Female
  Weight: 63 kg

DRUGS (4)
  1. EXEMESTANE [Suspect]
     Active Substance: EXEMESTANE
     Indication: Breast cancer metastatic
     Dosage: 25 MG, QD
     Route: 048
     Dates: start: 20200525, end: 20200807
  2. KISQALI [Suspect]
     Active Substance: RIBOCICLIB
     Indication: Breast cancer metastatic
     Dosage: 600 MG, QD (SCHEME 21 DAYS INTAKE, 7 DAYS PAUSE)
     Route: 048
     Dates: start: 20200225, end: 20200423
  3. KISQALI [Suspect]
     Active Substance: RIBOCICLIB
     Dosage: 600 MG, QD (SCHEME: 21 DAYS INTAKE, 7 DAYS PAUSE)
     Route: 048
     Dates: start: 20200508, end: 20200526
  4. FULVESTRANT [Suspect]
     Active Substance: FULVESTRANT
     Indication: Breast cancer metastatic
     Dosage: 500 MG, QMO (MONTHLY)
     Route: 030
     Dates: start: 20200224, end: 20200415

REACTIONS (3)
  - Hypertension [Recovered/Resolved]
  - Hepatitis [Recovered/Resolved]
  - Chromaturia [Unknown]

NARRATIVE: CASE EVENT DATE: 20200714
